FAERS Safety Report 4646876-4 (Version None)
Quarter: 2005Q1

REPORT INFORMATION
  Report Type: 
  Country: None (occurrence: None)
  Receive Date: 20050331
  Receipt Date: 20050217
  Transmission Date: 20050727
  Serious: No
  Sender: FDA-Public Use
  Company Number: 05P-163-0291030-00

PATIENT
  Age: 67 Year
  Sex: Female
  Weight: 72.5755 kg

DRUGS (5)
  1. HUMIRA [Suspect]
     Indication: RHEUMATOID ARTHRITIS
     Dosage: 40 MG, 1 IN 2 WK, SUBCUTANEOUS
     Route: 058
     Dates: start: 20040101, end: 20050216
  2. HYDROXYCHLOROQUINE PHOSPHATE [Concomitant]
  3. ESTROGENS CONJUGATED [Concomitant]
  4. PREDNISONE [Concomitant]
  5. MULTI-VITAMINS [Concomitant]

REACTIONS (3)
  - MIDDLE EAR EFFUSION [None]
  - NASOPHARYNGITIS [None]
  - PYREXIA [None]
